FAERS Safety Report 9478062 (Version 2)
Quarter: 2013Q3

REPORT INFORMATION
  Report Type: Spontaneous
  Country: US (occurrence: None)
  Receive Date: 20130822
  Receipt Date: 20130826
  Transmission Date: 20140515
  Serious: Yes (Hospitalization)
  Sender: FDA-Public Use
  Company Number: USA/USA/13/0034050

PATIENT
  Age: 56 Year
  Sex: Male
  Weight: 86.18 kg

DRUGS (2)
  1. CLOPIDOGREL BISULFATE [Suspect]
     Indication: PRODUCT USED FOR UNKNOWN INDICATION
     Dosage: 75MG, 1 IN 1D, ORAL
     Route: 048
     Dates: start: 201207, end: 20130806
  2. ATENOLOL (ATENOLOL) [Concomitant]

REACTIONS (10)
  - Discomfort [None]
  - Hypoaesthesia [None]
  - Hemiparesis [None]
  - Headache [None]
  - Ocular discomfort [None]
  - Increased tendency to bruise [None]
  - Chest pain [None]
  - Pain in extremity [None]
  - Musculoskeletal pain [None]
  - Product odour abnormal [None]
